FAERS Safety Report 5231915-2 (Version None)
Quarter: 2007Q1

REPORT INFORMATION
  Report Type: 
  Country: None (occurrence: None)
  Receive Date: 20070202
  Receipt Date: 20070122
  Transmission Date: 20070707
  Serious: Yes (Hospitalization)
  Sender: FDA-Public Use
  Company Number: 2007BI000709

PATIENT
  Age: 71 Year
  Sex: Male
  Weight: 77.1115 kg

DRUGS (7)
  1. AVONEX [Suspect]
     Indication: MULTIPLE SCLEROSIS
     Dosage: 30 UG; QW; IM
     Route: 030
     Dates: start: 20061215, end: 20061201
  2. AVONEX [Suspect]
     Indication: MULTIPLE SCLEROSIS
     Dosage: 15 UG; QW; IM
     Route: 030
     Dates: start: 20061201, end: 20070101
  3. AVONEX [Suspect]
     Indication: MULTIPLE SCLEROSIS
     Dosage: 30 UG; QW; IM
     Route: 030
     Dates: start: 20070101
  4. GLUCOPHAGE [Concomitant]
  5. ALTACE [Concomitant]
  6. DOXAZOSIN MESYLATE [Concomitant]
  7. OXYBUTRIN [Concomitant]

REACTIONS (13)
  - ARTHRALGIA [None]
  - ASTHENIA [None]
  - DYSSTASIA [None]
  - FATIGUE [None]
  - HEART RATE INCREASED [None]
  - HYPOTENSION [None]
  - HYPOVENTILATION [None]
  - INFECTION [None]
  - MOBILITY DECREASED [None]
  - OXYGEN SATURATION DECREASED [None]
  - PAIN [None]
  - PYREXIA [None]
  - RESPIRATORY RATE INCREASED [None]
